FAERS Safety Report 16771885 (Version 1)
Quarter: 2019Q3

REPORT INFORMATION
  Report Type: Spontaneous
  Country: JP (occurrence: JP)
  Receive Date: 20190904
  Receipt Date: 20190904
  Transmission Date: 20191005
  Serious: Yes (Congenital Anomaly, Other)
  Sender: FDA-Public Use
  Company Number: JP-LUPIN PHARMACEUTICALS INC.-2019-05725

PATIENT
  Weight: .52 kg

DRUGS (5)
  1. AMLODIPINE [Suspect]
     Active Substance: AMLODIPINE BESYLATE
     Indication: ESSENTIAL HYPERTENSION
     Dosage: UNK, (12W6D TO DELIVER)
     Route: 064
  2. LABETALOL [Suspect]
     Active Substance: LABETALOL\LABETALOL HYDROCHLORIDE
     Dosage: UNK (12W1D TO 17W5D)
     Route: 064
  3. LABETALOL [Suspect]
     Active Substance: LABETALOL\LABETALOL HYDROCHLORIDE
     Indication: ESSENTIAL HYPERTENSION
     Dosage: UNK (PREPREGNANCY TO 8W2D)
     Route: 064
  4. METHYLDOPA. [Suspect]
     Active Substance: METHYLDOPA
     Indication: ESSENTIAL HYPERTENSION
     Dosage: UNK, (9W4D TO DELIVERY)
     Route: 064
  5. ASPIRINE [Suspect]
     Active Substance: ASPIRIN
     Indication: PRODUCT USED FOR UNKNOWN INDICATION
     Dosage: UNK, (12W6D TO DELIVERY)
     Route: 064

REACTIONS (6)
  - Inguinal hernia [Unknown]
  - Hypospadias [Unknown]
  - Premature baby [Unknown]
  - Foetal exposure during pregnancy [Unknown]
  - Congenital spinal cord anomaly [Unknown]
  - Low birth weight baby [Unknown]
